FAERS Safety Report 6662090-5 (Version None)
Quarter: 2010Q1

REPORT INFORMATION
  Report Type: 
  Country: None (occurrence: None)
  Receive Date: 20100331
  Receipt Date: 20100319
  Transmission Date: 20100710
  Serious: Yes (Hospitalization)
  Sender: FDA-Public Use
  Company Number: GB-ELI_LILLY_AND_COMPANY-GB201003005756

PATIENT
  Sex: Female
  Weight: 59 kg

DRUGS (8)
  1. GEMCITABINE HCL [Suspect]
     Indication: BREAST CANCER METASTATIC
     Dosage: 1000 MG/M2, (1589 MG) ON DAY 1 AND DAY 8 EVERY 3 WEEKS
     Route: 042
     Dates: start: 20100311
  2. VINFLUNINE [Suspect]
     Indication: BREAST CANCER METASTATIC
     Dosage: 320 MG/M2, (512.5 MG) DAY 1 EVERY THREE WEEKS
     Route: 042
     Dates: start: 20100311
  3. ZOLEDRONIC ACID [Concomitant]
     Dates: start: 20100311
  4. MOVICOL [Concomitant]
     Dates: start: 20100310
  5. FYBOGEL [Concomitant]
  6. LACTULOSE [Concomitant]
     Dates: start: 20100310
  7. DEXAMETHASONE [Concomitant]
     Dates: start: 20100311, end: 20100313
  8. ONDANSETRON [Concomitant]
     Dates: start: 20100311, end: 20100312

REACTIONS (3)
  - CONSTIPATION [None]
  - NAUSEA [None]
  - VOMITING [None]
